FAERS Safety Report 14589767 (Version 1)
Quarter: 2018Q1

REPORT INFORMATION
  Report Type: Spontaneous
  Country: FR (occurrence: FR)
  Receive Date: 20180302
  Receipt Date: 20180302
  Transmission Date: 20180509
  Serious: Yes (Hospitalization)
  Sender: FDA-Public Use
  Company Number: FR-ASTRAZENECA-2018SE23555

PATIENT
  Sex: Male

DRUGS (9)
  1. ALLOPURINOL. [Concomitant]
     Active Substance: ALLOPURINOL
     Indication: HYPERURICAEMIA
     Route: 048
     Dates: start: 20100101
  2. OMEPRAZOLE. [Concomitant]
     Active Substance: OMEPRAZOLE
     Indication: PROPHYLAXIS AGAINST GASTROINTESTINAL ULCER
     Route: 048
     Dates: start: 20150101
  3. RILMENIDINE [Concomitant]
     Active Substance: RILMENIDINE
     Indication: HYPERTENSION
     Route: 048
     Dates: start: 20171101
  4. SPIRIVA [Concomitant]
     Active Substance: TIOTROPIUM BROMIDE MONOHYDRATE
     Indication: CHRONIC OBSTRUCTIVE PULMONARY DISEASE
     Dosage: 2 INTAKES DAILY
     Route: 055
  5. SYMBICORT [Suspect]
     Active Substance: BUDESONIDE\FORMOTEROL FUMARATE DIHYDRATE
     Indication: CHRONIC OBSTRUCTIVE PULMONARY DISEASE
     Dosage: 400/12 MICROGRAMS / DOSE, INTAKES IN THE MORNING AND 2 IN THE EVENING
     Route: 055
  6. KARDEGIC [Concomitant]
     Active Substance: ASPIRIN DL-LYSINE
     Indication: THROMBOSIS PROPHYLAXIS
     Route: 048
     Dates: start: 20150101
  7. TAHOR [Suspect]
     Active Substance: ATORVASTATIN CALCIUM
     Indication: DYSLIPIDAEMIA
     Route: 048
     Dates: start: 20130101, end: 20171218
  8. BIPRETERAX [Concomitant]
     Active Substance: INDAPAMIDE\PERINDOPRIL
     Indication: HYPERTENSION
     Route: 048
     Dates: start: 20170901
  9. NISISCO [Concomitant]
     Active Substance: HYDROCHLOROTHIAZIDE\VALSARTAN
     Indication: HYPERTENSION
     Route: 048
     Dates: start: 20110101

REACTIONS (2)
  - Tendon rupture [Recovered/Resolved with Sequelae]
  - Muscle spasms [Recovering/Resolving]

NARRATIVE: CASE EVENT DATE: 20130101
